FAERS Safety Report 18745538 (Version 1)
Quarter: 2021Q1

REPORT INFORMATION
  Report Type: Report from Study
  Country: AU (occurrence: AU)
  Receive Date: 20210115
  Receipt Date: 20210115
  Transmission Date: 20210419
  Serious: Yes (Other)
  Sender: FDA-Public Use
  Company Number: AU-REGENERON PHARMACEUTICALS, INC.-2020-88825

PATIENT

DRUGS (2)
  1. EYLEA [Suspect]
     Active Substance: AFLIBERCEPT
     Indication: PRODUCT USED FOR UNKNOWN INDICATION
     Dosage: BOTH EYES, TOTAL EYLEA DOSE WAS NOT REPORTED
     Route: 031
     Dates: start: 20200810
  2. EYLEA [Suspect]
     Active Substance: AFLIBERCEPT
     Dosage: UNK, ONCE, BOTH EYES, LAST INJECTION RECEIVED
     Route: 031
     Dates: start: 20210108, end: 20210108

REACTIONS (10)
  - Visual impairment [Unknown]
  - Visual impairment [Recovered/Resolved]
  - Laser therapy [Unknown]
  - Musculoskeletal disorder [Unknown]
  - Diabetes mellitus inadequate control [Unknown]
  - Hypertension [Recovering/Resolving]
  - Injection site haemorrhage [Unknown]
  - Photophobia [Not Recovered/Not Resolved]
  - Eye pain [Unknown]
  - Eye swelling [Unknown]

NARRATIVE: CASE EVENT DATE: 202008
